FAERS Safety Report 6238043-8 (Version None)
Quarter: 2009Q2

REPORT INFORMATION
  Report Type: 
  Country: None (occurrence: None)
  Receive Date: 20090617
  Receipt Date: 20090617
  Transmission Date: 20091009
  Serious: Yes (Other)
  Sender: FDA-Public Use
  Company Number: None

PATIENT
  Sex: Male
  Weight: 95.2554 kg

DRUGS (3)
  1. SINGULAIR [Suspect]
     Indication: LATEX ALLERGY
     Dosage: NORMAL
     Dates: start: 19990914, end: 20030914
  2. SINGULAIR [Suspect]
     Indication: WHEEZING
     Dosage: NORMAL
     Dates: start: 19990914, end: 20030914
  3. ZOLOFT [Concomitant]

REACTIONS (1)
  - SUICIDAL IDEATION [None]
